FAERS Safety Report 9549833 (Version 1)
Quarter: 2013Q3

REPORT INFORMATION
  Report Type: Spontaneous
  Country: US (occurrence: US)
  Receive Date: 20130924
  Receipt Date: 20130924
  Transmission Date: 20140515
  Serious: Yes (Death, Other)
  Sender: FDA-Public Use
  Company Number: US-ACTAVIS-2013-16561

PATIENT
  Sex: Male

DRUGS (15)
  1. METFORMIN HYDROCHLORIDE (AELLC) [Suspect]
     Indication: DIABETES MELLITUS
     Dosage: 500 MG, UNK
     Route: 048
     Dates: start: 20110622, end: 20130404
  2. LIPITOR [Suspect]
     Indication: HYPERLIPIDAEMIA
     Dosage: UNK, UNKNOWN
     Route: 048
     Dates: start: 20080303, end: 20130405
  3. LIPITOR [Suspect]
     Indication: DIABETES MELLITUS
     Dosage: 40 MG, DAILY
     Route: 048
  4. LIPITOR [Suspect]
     Indication: CORONARY ARTERY DISEASE
  5. ZOLOFT [Suspect]
     Indication: ANXIETY
     Dosage: 50 MG, DAILY
     Dates: start: 20111215
  6. ZOLOFT [Suspect]
     Dosage: 100 MG, DAILY
     Route: 048
     Dates: start: 20120503, end: 20130404
  7. ASPIRIN [Concomitant]
     Indication: CORONARY ARTERY DISEASE
     Dosage: 81 MG, DAILY
     Dates: start: 201107
  8. COREG [Concomitant]
     Indication: CORONARY ARTERY DISEASE
     Dosage: 6.25 MG, BID
     Route: 048
  9. DIOVAN [Concomitant]
     Indication: HYPERTENSION
     Dosage: 80 MG, DAILY
     Route: 048
     Dates: start: 20130303
  10. PEPCID                             /00706001/ [Concomitant]
  11. TAXOTERE [Concomitant]
  12. ONDANSETRON [Concomitant]
  13. BENADRYL                           /00000402/ [Concomitant]
  14. DEXAMETHASONE [Concomitant]
  15. PROCHLORPERAZINE [Concomitant]

REACTIONS (12)
  - Prostate cancer metastatic [Fatal]
  - Prostate cancer [Fatal]
  - Retroperitoneal lymphadenopathy [Fatal]
  - Hepatic lesion [Fatal]
  - Abdominal discomfort [Fatal]
  - Liver function test abnormal [Fatal]
  - Fatigue [Fatal]
  - Decreased appetite [Fatal]
  - Dysgeusia [Fatal]
  - Weight decreased [Fatal]
  - Nausea [Fatal]
  - Dizziness [Fatal]
